FAERS Safety Report 10740186 (Version 2)
Quarter: 2015Q1

REPORT INFORMATION
  Report Type: Not Available
  Country: FR (occurrence: FR)
  Receive Date: 20150127
  Receipt Date: 20150303
  Transmission Date: 20150721
  Serious: Yes (Hospitalization)
  Sender: FDA-Public Use
  Company Number: FR-BEH-2015048073

PATIENT
  Age: 72 Year
  Sex: Male

DRUGS (3)
  1. PRIVIGEN [Suspect]
     Active Substance: HUMAN IMMUNOGLOBULIN G
     Dosage: POSOLOGY: 35 G
     Route: 042
     Dates: start: 20141124, end: 20141129
  2. COLCHIMAX [Suspect]
     Active Substance: COLCHICINE\DICYCLOMINE HYDROCHLORIDE
     Indication: GOUT
     Route: 048
  3. FLECTOR [Suspect]
     Active Substance: DICLOFENAC EPOLAMINE
     Dates: end: 20141129

REACTIONS (6)
  - Skin plaque [Recovered/Resolved]
  - Gout [Recovered/Resolved]
  - Eczema [Recovered/Resolved]
  - Dermatitis exfoliative [Recovered/Resolved]
  - Erythema [Recovered/Resolved]
  - Dermatitis exfoliative [Recovered/Resolved]

NARRATIVE: CASE EVENT DATE: 20141129
